FAERS Safety Report 8679460 (Version 2)
Quarter: 2013Q1

REPORT INFORMATION
  Report Type: Spontaneous
  Country: US (occurrence: None)
  Receive Date: 20120706
  Receipt Date: 20130219
  Transmission Date: 20140127
  Serious: Yes (Other)
  Sender: FDA-Public Use
  Company Number: DSU-2012-05232

PATIENT
  Age: 75 Year
  Sex: Female

DRUGS (1)
  1. OLMESARTAN MEDOXOMIL [Suspect]
     Dosage: (40 MG, QD), PER ORAL
     Route: 048
     Dates: start: 2002, end: 20110719

REACTIONS (3)
  - WEIGHT DECREASED [None]
  - GASTRITIS [None]
  - GASTRIC ULCER [None]
